FAERS Safety Report 5211805-1 (Version None)
Quarter: 2007Q1

REPORT INFORMATION
  Report Type: 
  Country: None (occurrence: None)
  Receive Date: 20070116
  Receipt Date: 20070103
  Transmission Date: 20070707
  Serious: Yes (Life-Threatening, Hospitalization)
  Sender: FDA-Public Use
  Company Number: 234589

PATIENT
  Age: 66 Year
  Sex: Male

DRUGS (4)
  1. MABTHERA(RITUXIMAB) CONC FOR SOLUTION FOR INFUSION [Suspect]
     Indication: FACTOR VIII INHIBITION
     Dosage: 700 MG, 1/WEEK, INTRAVENOUS
     Route: 042
     Dates: start: 20061204
  2. CEFTRIAXONE [Concomitant]
  3. CLINDAMYCIN [Concomitant]
  4. TRAMADOL HCL [Concomitant]

REACTIONS (1)
  - PULMONARY OEDEMA [None]
